FAERS Safety Report 25704591 (Version 1)
Quarter: 2025Q3

REPORT INFORMATION
  Report Type: Spontaneous
  Country: US (occurrence: US)
  Receive Date: 20250820
  Receipt Date: 20250820
  Transmission Date: 20251021
  Serious: Yes (Hospitalization)
  Sender: NOVITIUM PHARMA
  Company Number: US-NOVITIUMPHARMA-2025USNVP02072

PATIENT
  Age: 48 Year
  Sex: Male

DRUGS (7)
  1. TERAZOSIN [Suspect]
     Active Substance: TERAZOSIN HYDROCHLORIDE
     Indication: Secondary hypertension
  2. TERAZOSIN [Suspect]
     Active Substance: TERAZOSIN HYDROCHLORIDE
  3. AMLODIPINE [Concomitant]
     Active Substance: AMLODIPINE BESYLATE
     Indication: Secondary hypertension
  4. HYDRALAZINE [Concomitant]
     Active Substance: HYDRALAZINE HYDROCHLORIDE
     Indication: Secondary hypertension
  5. LOSARTAN [Concomitant]
     Active Substance: LOSARTAN
     Indication: Secondary hypertension
  6. METOPROLOL [Concomitant]
     Active Substance: METOPROLOL
     Indication: Secondary hypertension
  7. NICARDIPINE [Concomitant]
     Active Substance: NICARDIPINE
     Indication: Secondary hypertension
     Route: 041

REACTIONS (1)
  - Rebound effect [Unknown]
